FAERS Safety Report 9433405 (Version 1)
Quarter: 2013Q3

REPORT INFORMATION
  Report Type: Spontaneous
  Country: FR (occurrence: FR)
  Receive Date: 20130731
  Receipt Date: 20130731
  Transmission Date: 20140515
  Serious: Yes (Disabling)
  Sender: FDA-Public Use
  Company Number: FR-ELI_LILLY_AND_COMPANY-FR201307006793

PATIENT
  Age: 54 Year
  Sex: Male

DRUGS (3)
  1. ALIMTA [Suspect]
     Indication: ADENOCARCINOMA
     Dosage: 500 MG/M2, OTHER
     Route: 042
     Dates: start: 20121130, end: 20130306
  2. CARBOPLATIN [Suspect]
     Indication: ADENOCARCINOMA
     Dosage: UNK
     Route: 042
  3. CISPLATIN [Concomitant]

REACTIONS (4)
  - Peripheral sensory neuropathy [Recovering/Resolving]
  - Peripheral motor neuropathy [Recovering/Resolving]
  - Paralysis [Recovering/Resolving]
  - Off label use [Recovered/Resolved]
